FAERS Safety Report 23941075 (Version 1)
Quarter: 2024Q2

REPORT INFORMATION
  Report Type: Spontaneous
  Country: US (occurrence: US)
  Receive Date: 20240605
  Receipt Date: 20240605
  Transmission Date: 20240716
  Serious: No
  Sender: FDA-Public Use
  Company Number: US-AUROBINDO-AUR-APL-2024-006379

PATIENT
  Age: 69 Year
  Sex: Female
  Weight: 79.3 kg

DRUGS (1)
  1. VENLAFAXINE HYDROCHLORIDE [Suspect]
     Active Substance: VENLAFAXINE HYDROCHLORIDE
     Indication: Anxiety
     Dosage: UNK, TWO TIMES A DAY
     Route: 065
     Dates: start: 2006

REACTIONS (3)
  - Flank pain [Unknown]
  - Nausea [Unknown]
  - Product colour issue [Unknown]
